FAERS Safety Report 5671397-X (Version None)
Quarter: 2008Q1

REPORT INFORMATION
  Report Type: 
  Country: None (occurrence: None)
  Receive Date: 20080318
  Receipt Date: 20080306
  Transmission Date: 20080703
  Serious: Yes (Other)
  Sender: FDA-Public Use
  Company Number: US-PFIZER INC-2008021520

PATIENT
  Sex: Female
  Weight: 70.3 kg

DRUGS (1)
  1. ZOLOFT [Suspect]
     Indication: ANXIETY

REACTIONS (5)
  - ACCIDENTAL OVERDOSE [None]
  - ENDOMETRIOSIS [None]
  - HAEMORRHAGE [None]
  - INSOMNIA [None]
  - UNEVALUABLE EVENT [None]
